FAERS Safety Report 13845464 (Version 1)
Quarter: 2017Q3

REPORT INFORMATION
  Report Type: Spontaneous
  Country: US (occurrence: US)
  Receive Date: 20170808
  Receipt Date: 20170808
  Transmission Date: 20171127
  Serious: No
  Sender: FDA-Public Use
  Company Number: US-ROCHE-784818

PATIENT
  Sex: Female
  Weight: 44 kg

DRUGS (4)
  1. BONIVA [Suspect]
     Active Substance: IBANDRONATE SODIUM
     Indication: OSTEOPENIA
     Route: 048
  2. CALCIUM [Concomitant]
     Active Substance: CALCIUM
     Route: 065
  3. MULTIVITAMIN NOS [Concomitant]
     Active Substance: VITAMINS
     Route: 065
  4. PREMPRO [Concomitant]
     Active Substance: ESTROGENS, CONJUGATED\MEDROXYPROGESTERONE ACETATE
     Route: 065

REACTIONS (4)
  - Ocular hyperaemia [Unknown]
  - Neck pain [Unknown]
  - Heart rate increased [Unknown]
  - Rash [Unknown]
